FAERS Safety Report 4649372-3 (Version None)
Quarter: 2005Q2

REPORT INFORMATION
  Report Type: 
  Country: None (occurrence: None)
  Receive Date: 20050428
  Receipt Date: 20050428
  Transmission Date: 20051028
  Serious: No
  Sender: FDA-Public Use
  Company Number: None

PATIENT
  Sex: Female
  Weight: 63.9572 kg

DRUGS (2)
  1. GABAPENTIN [Suspect]
     Indication: BACK PAIN
     Dosage: 300MG  PO  TID
     Route: 048
  2. GABAPENTIN [Suspect]
     Indication: CEREBRAL PALSY
     Dosage: 300MG  PO  TID
     Route: 048

REACTIONS (3)
  - DYSPEPSIA [None]
  - GASTROOESOPHAGEAL REFLUX DISEASE [None]
  - PHARMACEUTICAL PRODUCT COMPLAINT [None]
